FAERS Safety Report 24152800 (Version 2)
Quarter: 2025Q2

REPORT INFORMATION
  Report Type: Spontaneous
  Country: US (occurrence: US)
  Receive Date: 20240730
  Receipt Date: 20250415
  Transmission Date: 20250716
  Serious: No
  Sender: SANOFI AVENTIS
  Company Number: US-SA-SAC20240724000782

PATIENT
  Age: 30 Year
  Sex: Female

DRUGS (3)
  1. DUPIXENT [Suspect]
     Active Substance: DUPILUMAB
     Indication: Eczema
     Route: 058
     Dates: start: 20230625, end: 20230625
  2. DUPIXENT [Suspect]
     Active Substance: DUPILUMAB
     Indication: Dermatitis atopic
     Dosage: 300 MG, QOW
     Route: 058
     Dates: start: 2023, end: 202402
  3. DUPIXENT [Suspect]
     Active Substance: DUPILUMAB
     Dosage: 300 MG QOW
     Route: 058
     Dates: start: 202405

REACTIONS (2)
  - Eczema [Recovering/Resolving]
  - Product dose omission in error [Unknown]

NARRATIVE: CASE EVENT DATE: 20240101
